FAERS Safety Report 6028357-9 (Version None)
Quarter: 2009Q1

REPORT INFORMATION
  Report Type: 
  Country: None (occurrence: None)
  Receive Date: 20090106
  Receipt Date: 20090105
  Transmission Date: 20090719
  Serious: Yes (Other)
  Sender: FDA-Public Use
  Company Number: US-BRISTOL-MYERS SQUIBB COMPANY-14460513

PATIENT
  Age: 59 Year
  Sex: Female

DRUGS (1)
  1. ORENCIA [Suspect]
     Indication: RHEUMATOID ARTHRITIS
     Dosage: RECEIVED 5TH INFUSION ON 23-DEC-2008 (750MG).1ST DOSE ON 02-SEP-2008.
     Route: 042
     Dates: start: 20081223

REACTIONS (1)
  - PANCREATITIS [None]
